FAERS Safety Report 4502944-9 (Version None)
Quarter: 2004Q4

REPORT INFORMATION
  Report Type: 
  Country: None (occurrence: None)
  Receive Date: 20041112
  Receipt Date: 20041102
  Transmission Date: 20050328
  Serious: No
  Sender: FDA-Public Use
  Company Number: 2004UW22583

PATIENT
  Sex: Male

DRUGS (1)
  1. NEXIUM [Suspect]
     Dosage: 40 MG BID PO
     Route: 048
     Dates: start: 20030101

REACTIONS (1)
  - PNEUMONIA [None]
